FAERS Safety Report 6104548-3 (Version None)
Quarter: 2009Q1

REPORT INFORMATION
  Report Type: 
  Country: None (occurrence: None)
  Receive Date: 20090305
  Receipt Date: 20090223
  Transmission Date: 20090719
  Serious: Yes (Other)
  Sender: FDA-Public Use
  Company Number: GB-ABBOTT-09P-167-0558857-00

PATIENT
  Age: 26 Year
  Sex: Female

DRUGS (15)
  1. CYCLOSPORINE [Suspect]
     Indication: IMMUNOSUPPRESSION
     Dosage: MICROEMULSION 7.5 MG/KG IN 2 DIVIDED DOSES
  2. TACROLIMUS [Suspect]
     Indication: IMMUNOSUPPRESSION
     Dosage: 0.1 MG/KG IN 2 DIVIDED DOSES
  3. SIROLIMUS [Suspect]
     Indication: IMMUNOSUPPRESSANT DRUG THERAPY
     Dosage: TITRATED UP 1 MG/WEEK TO 3MG/DAY
  4. PREDNISOLONE [Concomitant]
     Indication: IMMUNOSUPPRESSION
     Dosage: NOT REPORTED
  5. PREDNISOLONE [Concomitant]
  6. PREDNISOLONE [Concomitant]
  7. CYCLOPHOSPHAMIDE [Concomitant]
     Indication: IMMUNOSUPPRESSION
     Dosage: NOT REPORTED
  8. MYCOPHENOLATE MOFETIL [Concomitant]
     Indication: IMMUNOSUPPRESSION
     Dosage: NOT REPORTED
  9. DACLIZUMAB [Concomitant]
     Indication: IMMUNOSUPPRESSION
  10. AZATHIOPRINE [Concomitant]
     Indication: IMMUNOSUPPRESSION
  11. AZATHIOPRINE [Concomitant]
  12. AZATHIOPRINE [Concomitant]
  13. CO-TRIMOXAZOLE [Concomitant]
     Indication: INFECTION PROPHYLAXIS
     Dosage: NOT REPORTED
  14. LINEZOLID [Concomitant]
     Indication: PERITONITIS
     Dosage: NOT REPORTED
  15. BELATACEPT [Concomitant]
     Indication: IMMUNOSUPPRESSION

REACTIONS (3)
  - COMPLICATIONS OF TRANSPLANTED KIDNEY [None]
  - RENAL TRANSPLANT [None]
  - THROMBOTIC MICROANGIOPATHY [None]
